FAERS Safety Report 23125178 (Version 2)
Quarter: 2023Q4

REPORT INFORMATION
  Report Type: Spontaneous
  Country: AR (occurrence: AR)
  Receive Date: 20231030
  Receipt Date: 20231101
  Transmission Date: 20240110
  Serious: Yes (Hospitalization, Other)
  Sender: FDA-Public Use
  Company Number: AR-SUN PHARMACEUTICAL INDUSTRIES LTD-2021R1-311043

PATIENT
  Age: 35 Year
  Sex: Male

DRUGS (1)
  1. ZOLPIDEM [Suspect]
     Active Substance: ZOLPIDEM TARTRATE
     Indication: Sleep disorder
     Dosage: 300 MILLIGRAM, DAILY
     Route: 065

REACTIONS (6)
  - Psychomotor hyperactivity [Recovered/Resolved]
  - Drug withdrawal convulsions [Unknown]
  - Drug dependence [Unknown]
  - Extra dose administered [Unknown]
  - Generalised tonic-clonic seizure [Unknown]
  - Prescription drug used without a prescription [Unknown]
